FAERS Safety Report 17040480 (Version 1)
Quarter: 2019Q4

REPORT INFORMATION
  Report Type: Spontaneous
  Country: GB (occurrence: GB)
  Receive Date: 20191117
  Receipt Date: 20191117
  Transmission Date: 20200122
  Serious: Yes (Other)
  Sender: FDA-Public Use
  Company Number: GB-TEVA-149981ISR

PATIENT
  Age: 70 Year
  Sex: Male

DRUGS (2)
  1. PROCHLORPERAZINE. [Suspect]
     Active Substance: PROCHLORPERAZINE
     Indication: URINARY TRACT INFECTION
     Route: 048
  2. TRIMETHOPRIM. [Suspect]
     Active Substance: TRIMETHOPRIM
     Indication: MALAISE
     Route: 048

REACTIONS (1)
  - Vasculitic rash [Recovered/Resolved]
